FAERS Safety Report 4449884-1 (Version None)
Quarter: 2004Q3

REPORT INFORMATION
  Report Type: 
  Country: None (occurrence: None)
  Receive Date: 20040915
  Receipt Date: 20040908
  Transmission Date: 20050211
  Serious: Yes (Other)
  Sender: FDA-Public Use
  Company Number: GB-MERCK-0409GBR00086

PATIENT
  Age: 60 Year
  Sex: Female

DRUGS (3)
  1. ESTROGENS, CONJUGATED [Concomitant]
     Indication: HORMONE REPLACEMENT THERAPY
     Route: 048
     Dates: start: 19920101
  2. ZOCOR [Suspect]
     Indication: HYPERCHOLESTEROLAEMIA
     Route: 065
     Dates: start: 20040810, end: 20040810
  3. ZOCOR [Suspect]
     Route: 065
     Dates: start: 20040825, end: 20040825

REACTIONS (2)
  - CONTUSION [None]
  - MASS [None]
